FAERS Safety Report 7220421-1 (Version None)
Quarter: 2010Q4

REPORT INFORMATION
  Report Type: 
  Country: None (occurrence: None)
  Receive Date: 20101230
  Receipt Date: 20101223
  Transmission Date: 20110411
  Serious: Yes (Hospitalization)
  Sender: FDA-Public Use
  Company Number: WAES 1012USA03760

PATIENT
  Age: 63 Year
  Sex: Female

DRUGS (6)
  1. JANUVIA [Suspect]
     Indication: TYPE 2 DIABETES MELLITUS
     Dosage: 100 MG/DAILY PO
     Route: 048
     Dates: start: 20100217, end: 20101128
  2. BLINDED THERAPY [Suspect]
     Indication: TYPE 2 DIABETES MELLITUS
     Dosage: SC, PO
     Dates: start: 20100217, end: 20101124
  3. BLINDED THERAPY [Suspect]
     Indication: TYPE 2 DIABETES MELLITUS
     Dosage: SC, PO
     Dates: start: 20100217, end: 20101128
  4. CONCOR [Concomitant]
  5. DIROTON [Concomitant]
  6. INDAPAMIDE [Concomitant]

REACTIONS (1)
  - HEPATITIS [None]
